FAERS Safety Report 8452719-3 (Version None)
Quarter: 2012Q2

REPORT INFORMATION
  Report Type: 
  Country: None (occurrence: None)
  Receive Date: 20120620
  Receipt Date: 20120425
  Transmission Date: 20120825
  Serious: No
  Sender: FDA-Public Use
  Company Number: US-VERTEX PHARMACEUTICALS INC.-AE-2012-005863

PATIENT
  Sex: Male
  Weight: 45.309 kg

DRUGS (10)
  1. EXFORGE [Concomitant]
     Route: 048
  2. ANTIHISTAMINES [Concomitant]
  3. PEGASYS [Concomitant]
     Indication: HEPATITIS C
     Route: 058
     Dates: start: 20120405
  4. RIBASPHERE [Concomitant]
     Indication: HEPATITIS C
     Route: 048
     Dates: start: 20120405
  5. CLONAZEPAM [Concomitant]
     Route: 048
  6. RISPERDAL [Concomitant]
     Route: 048
  7. INCIVEK [Suspect]
     Indication: HEPATITIS C
     Route: 048
     Dates: start: 20120405
  8. KLONOPIN [Concomitant]
  9. LEXAPRO [Concomitant]
     Route: 048
  10. LITHIUM [Concomitant]
     Route: 048

REACTIONS (9)
  - DYSPNOEA [None]
  - JOINT SWELLING [None]
  - RASH [None]
  - ANORECTAL DISCOMFORT [None]
  - ANAL PRURITUS [None]
  - ABDOMINAL DISCOMFORT [None]
  - HEART RATE INCREASED [None]
  - NAUSEA [None]
  - DIARRHOEA [None]
